FAERS Safety Report 17694004 (Version 2)
Quarter: 2020Q2

REPORT INFORMATION
  Report Type: Spontaneous
  Country: DE (occurrence: DE)
  Receive Date: 20200422
  Receipt Date: 20200422
  Transmission Date: 20200714
  Serious: Yes (Hospitalization)
  Sender: FDA-Public Use
  Company Number: DE-JNJFOC-20200424326

PATIENT
  Age: 10 Year

DRUGS (4)
  1. HUMIRA [Suspect]
     Active Substance: ADALIMUMAB
     Indication: JUVENILE IDIOPATHIC ARTHRITIS
     Dosage: DRUG START PERIOD 168 (DAYS), DRUG LAST PERIOD 8 (DAYS)
     Route: 058
     Dates: start: 20190523, end: 20191030
  2. METHOTREXATE (METHOTREXATE SODIUM) [Suspect]
     Active Substance: METHOTREXATE SODIUM
     Indication: PRODUCT USED FOR UNKNOWN INDICATION
     Dosage: DRUG START PERIOD 168 (DAYS)
     Route: 065
     Dates: start: 20190523
  3. PREDNISON [Suspect]
     Active Substance: PREDNISONE
     Indication: PRODUCT USED FOR UNKNOWN INDICATION
     Dosage: DRUG START PERIOD 168 (DAYS)
     Route: 065
     Dates: start: 20190523
  4. IBUPROFEN. [Suspect]
     Active Substance: IBUPROFEN
     Indication: PRODUCT USED FOR UNKNOWN INDICATION
     Dosage: DRUG START PERIOD 159 (DAYS)
     Route: 065
     Dates: start: 20190601

REACTIONS (2)
  - Optic neuritis [Recovering/Resolving]
  - Transaminases increased [Not Recovered/Not Resolved]

NARRATIVE: CASE EVENT DATE: 20191107
